FAERS Safety Report 18111222 (Version 2)
Quarter: 2020Q3

REPORT INFORMATION
  Report Type: Spontaneous
  Country: US (occurrence: US)
  Receive Date: 20200804
  Receipt Date: 20200804
  Transmission Date: 20201103
  Serious: Yes (Hospitalization)
  Sender: FDA-Public Use
  Company Number: US-CHURCH + DWIGHT CO., INC.-2088145

PATIENT
  Sex: Female

DRUGS (1)
  1. ADVANCE WHITE EXTREME WHITENING TARTAR CONTROL [Suspect]
     Active Substance: SODIUM FLUORIDE
     Indication: DENTAL CLEANING
     Route: 048

REACTIONS (9)
  - Dysphagia [Unknown]
  - Lymphadenopathy [Unknown]
  - Dyspnoea [Unknown]
  - Paraesthesia oral [Unknown]
  - Tongue blistering [Unknown]
  - Swollen tongue [Unknown]
  - Lip swelling [Unknown]
  - Burn oral cavity [Unknown]
  - Oral discomfort [Unknown]
